FAERS Safety Report 13959534 (Version 1)
Quarter: 2017Q3

REPORT INFORMATION
  Report Type: Spontaneous
  Country: ZA (occurrence: ZA)
  Receive Date: 20170911
  Receipt Date: 20170911
  Transmission Date: 20171128
  Serious: Yes (Death)
  Sender: FDA-Public Use
  Company Number: ZA-PFIZER INC-2017392646

PATIENT

DRUGS (6)
  1. ZETOMAX [Suspect]
     Active Substance: LISINOPRIL
     Dosage: UNK
  2. PANTOR [Suspect]
     Active Substance: PANTOPRAZOLE SODIUM
     Dosage: UNK
  3. BISLO [Suspect]
     Active Substance: BISOPROLOL FUMARATE
     Dosage: UNK
  4. ZOXADON [Suspect]
     Active Substance: RISPERIDONE
     Dosage: UNK
  5. METFORMIN [Suspect]
     Active Substance: METFORMIN HYDROCHLORIDE
     Dosage: UNK
  6. ASPAVOR [Suspect]
     Active Substance: ATORVASTATIN
     Dosage: UNK

REACTIONS (1)
  - Death [Fatal]
